FAERS Safety Report 15125120 (Version 2)
Quarter: 2018Q3

REPORT INFORMATION
  Report Type: Spontaneous
  Country: ZA (occurrence: ZA)
  Receive Date: 20180710
  Receipt Date: 20180804
  Transmission Date: 20181010
  Serious: Yes (Other)
  Sender: FDA-Public Use
  Company Number: ZA-009507513-1806ZAF011737

PATIENT
  Age: 63 Year
  Sex: Male

DRUGS (1)
  1. ESMERON [Suspect]
     Active Substance: ROCURONIUM BROMIDE
     Indication: PARALYSIS
     Dosage: 5 ML, STAT

REACTIONS (4)
  - Drug ineffective [Unknown]
  - Product storage error [Unknown]
  - Cough [Recovered/Resolved]
  - Product quality issue [Unknown]
